FAERS Safety Report 4837414-1 (Version None)
Quarter: 2005Q4

REPORT INFORMATION
  Report Type: 
  Country: None (occurrence: None)
  Receive Date: 20051123
  Receipt Date: 20051123
  Transmission Date: 20060501
  Serious: Yes (Hospitalization)
  Sender: FDA-Public Use
  Company Number: None

PATIENT
  Sex: Female

DRUGS (14)
  1. POTASSIUM CHLORIDE [Suspect]
     Indication: HYPOKALAEMIA
     Dosage: PO
     Route: 048
  2. LISINOPRIL [Suspect]
     Indication: HYPERTENSION
     Dosage: PO
     Route: 048
  3. HALOPERIDOL [Concomitant]
  4. GLIPIZIDE [Concomitant]
  5. NIFEDPINE [Concomitant]
  6. SIMVASTATIN [Concomitant]
  7. ASPIRIN [Concomitant]
  8. CLONIDINE [Concomitant]
  9. DOCUSATE [Concomitant]
  10. COLCHICINE [Concomitant]
  11. POTASSIUM CHLORIDE [Concomitant]
  12. GABAPENTIN [Concomitant]
  13. FUROSEMIDE [Concomitant]
  14. LISINOPRIL [Concomitant]

REACTIONS (2)
  - BLOOD POTASSIUM INCREASED [None]
  - BLOOD PRESSURE SYSTOLIC INCREASED [None]
